FAERS Safety Report 19736407 (Version 1)
Quarter: 2021Q3

REPORT INFORMATION
  Report Type: Spontaneous
  Country: US (occurrence: US)
  Receive Date: 20210820
  Receipt Date: 20210820
  Transmission Date: 20211014
  Serious: No
  Sender: FDA-Public Use
  Company Number: None

PATIENT
  Age: 5 Month
  Sex: Male

DRUGS (1)
  1. ERLEADA [Suspect]
     Active Substance: APALUTAMIDE
     Indication: PROSTATE CANCER
     Route: 048
     Dates: start: 20210720

REACTIONS (8)
  - Balance disorder [None]
  - Rash [None]
  - Pain in extremity [None]
  - Asthenia [None]
  - Arthralgia [None]
  - Hot flush [None]
  - Memory impairment [None]
  - Back pain [None]

NARRATIVE: CASE EVENT DATE: 20210722
